FAERS Safety Report 6329768-4 (Version None)
Quarter: 2009Q3

REPORT INFORMATION
  Report Type: 
  Country: None (occurrence: None)
  Receive Date: 20090826
  Receipt Date: 20090817
  Transmission Date: 20100115
  Serious: Yes (Hospitalization)
  Sender: FDA-Public Use
  Company Number: JP-JNJCH-2009020446

PATIENT
  Sex: Male

DRUGS (5)
  1. CETIRIZINE HYDROCHLORIDE [Suspect]
     Indication: RASH
     Dosage: TEXT:10 MG
     Route: 048
     Dates: start: 20090719, end: 20090720
  2. CETIRIZINE HYDROCHLORIDE [Suspect]
     Indication: RHINORRHOEA
  3. CEFCAPENE PIVOXIL HYDROCHLORIDE [Suspect]
     Indication: PYREXIA
     Dosage: TEXT:300 MG
     Route: 048
     Dates: start: 20090719, end: 20090720
  4. PARACETAMOL [Suspect]
     Indication: PYREXIA
     Dosage: TEXT:200 MG
     Route: 048
     Dates: start: 20090719
  5. PL [Suspect]
     Indication: PYREXIA
     Dosage: TEXT:3 G
     Route: 048
     Dates: start: 20090719, end: 20090720

REACTIONS (1)
  - RASH [None]
